FAERS Safety Report 5553913-1 (Version None)
Quarter: 2007Q4

REPORT INFORMATION
  Report Type: 
  Country: None (occurrence: None)
  Receive Date: 20071212
  Receipt Date: 20071212
  Transmission Date: 20080405
  Serious: Yes (Other)
  Sender: FDA-Public Use
  Company Number: None

PATIENT
  Age: 27 Year
  Sex: Female
  Weight: 86.1834 kg

DRUGS (1)
  1. CEFTRIAXONE [Suspect]
     Indication: ARTHRITIS BACTERIAL
     Dosage: 2 GM X 1 IVPB
     Route: 042

REACTIONS (2)
  - ERYTHEMA [None]
  - OEDEMA [None]
